FAERS Safety Report 6387804-3 (Version None)
Quarter: 2009Q4

REPORT INFORMATION
  Report Type: 
  Country: None (occurrence: None)
  Receive Date: 20091005
  Receipt Date: 20090925
  Transmission Date: 20100525
  Serious: Yes (Hospitalization)
  Sender: FDA-Public Use
  Company Number: FR-WYE-H11341809

PATIENT
  Age: 76 Year
  Sex: Male

DRUGS (3)
  1. CORDARONE [Suspect]
     Indication: ARRHYTHMIA
     Route: 048
     Dates: start: 20090730, end: 20090730
  2. CORDARONE [Suspect]
     Route: 048
     Dates: start: 20090731, end: 20090731
  3. METFORMIN [Suspect]
     Dosage: DOSE UNKNOWN
     Route: 065
     Dates: start: 20090731

REACTIONS (1)
  - VASCULAR PURPURA [None]
